FAERS Safety Report 7993164-4 (Version None)
Quarter: 2011Q4

REPORT INFORMATION
  Report Type: 
  Country: None (occurrence: None)
  Receive Date: 20111219
  Receipt Date: 20101111
  Transmission Date: 20120403
  Serious: No
  Sender: FDA-Public Use
  Company Number: US-ASTRAZENECA-2010SE53901

PATIENT
  Age: 71 Year
  Sex: Female
  Weight: 59.9 kg

DRUGS (1)
  1. CRESTOR [Suspect]
     Indication: HYPERCHOLESTEROLAEMIA
     Route: 048
     Dates: start: 20101110, end: 20101111

REACTIONS (3)
  - INSOMNIA [None]
  - COUGH [None]
  - HEADACHE [None]
